FAERS Safety Report 22315319 (Version 2)
Quarter: 2023Q2

REPORT INFORMATION
  Report Type: Report from Study
  Country: IN (occurrence: None)
  Receive Date: 20230512
  Receipt Date: 20230515
  Transmission Date: 20230722
  Serious: Yes (Death, Hospitalization, Disabling, Other)
  Sender: FDA-Public Use
  Company Number: 2023A108107

PATIENT
  Sex: Female
  Weight: 60 kg

DRUGS (1)
  1. TAGRISSO [Suspect]
     Active Substance: OSIMERTINIB
     Indication: Non-small cell lung cancer metastatic
     Dosage: 80.0MG ONCE/SINGLE ADMINISTRATION
     Route: 048

REACTIONS (6)
  - Cerebral thrombosis [Fatal]
  - Cerebral infarction [Fatal]
  - Discomfort [Fatal]
  - Memory impairment [Unknown]
  - Coordination abnormal [Unknown]
  - Blindness [Unknown]
